FAERS Safety Report 6903088-9 (Version None)
Quarter: 2010Q3

REPORT INFORMATION
  Report Type: 
  Country: None (occurrence: None)
  Receive Date: 20100803
  Receipt Date: 20080619
  Transmission Date: 20110219
  Serious: Yes (Other)
  Sender: FDA-Public Use
  Company Number: US-PFIZER INC-2008006985

PATIENT
  Sex: Female

DRUGS (4)
  1. LYRICA [Suspect]
     Indication: FIBROMYALGIA
     Route: 048
  2. DONNATAL [Suspect]
  3. GEODON [Concomitant]
  4. NORVASC [Concomitant]

REACTIONS (2)
  - ASTHENIA [None]
  - DRY MOUTH [None]
